FAERS Safety Report 4763480-8 (Version None)
Quarter: 2005Q3

REPORT INFORMATION
  Report Type: 
  Country: None (occurrence: None)
  Receive Date: 20050907
  Receipt Date: 20050907
  Transmission Date: 20060218
  Serious: Yes (Hospitalization)
  Sender: FDA-Public Use
  Company Number: None

PATIENT
  Age: 75 Year
  Sex: Male

DRUGS (13)
  1. BIAXIN [Suspect]
     Indication: MULTIPLE MYELOMA
  2. DEXAMETHASONE [Suspect]
  3. CC5013 [Suspect]
  4. EPOGEN [Concomitant]
  5. LOPRESSOR [Concomitant]
  6. K-DUR 10 [Concomitant]
  7. DYAZIDE [Concomitant]
  8. AMBIEN [Concomitant]
  9. ZOMETA [Concomitant]
  10. TRIAMTERENE [Concomitant]
  11. HYDROCHLOROTHIAZIDE [Concomitant]
  12. VIAGRA [Concomitant]
  13. PEPCID [Concomitant]

REACTIONS (1)
  - SPLENECTOMY [None]
